FAERS Safety Report 9496418 (Version 1)
Quarter: 2013Q3

REPORT INFORMATION
  Report Type: Spontaneous
  Country: US (occurrence: None)
  Receive Date: 20130829
  Receipt Date: 20130829
  Transmission Date: 20140515
  Serious: Yes (Other)
  Sender: FDA-Public Use
  Company Number: NSR_01223_2013

PATIENT
  Age: 54 Year
  Sex: Male

DRUGS (4)
  1. ALLOPURINOL [Suspect]
  2. MYCOPHENOLATE MOFETIL [Suspect]
  3. TACROLIMUS [Suspect]
  4. STEROID TAPER [Concomitant]

REACTIONS (4)
  - Drug interaction [None]
  - Leukopenia [None]
  - Haemoglobin decreased [None]
  - Haematocrit decreased [None]
